FAERS Safety Report 20540943 (Version 1)
Quarter: 2022Q1

REPORT INFORMATION
  Report Type: Spontaneous
  Country: JP (occurrence: JP)
  Receive Date: 20220302
  Receipt Date: 20220302
  Transmission Date: 20220423
  Serious: Yes (Hospitalization)
  Sender: FDA-Public Use
  Company Number: JP-JNJFOC-20210959009

PATIENT
  Age: 31 Year
  Sex: Female

DRUGS (2)
  1. STELARA [Suspect]
     Active Substance: USTEKINUMAB
     Indication: Crohn^s disease
     Route: 042
     Dates: start: 20210701, end: 20210701
  2. STELARA [Suspect]
     Active Substance: USTEKINUMAB
     Route: 058
     Dates: start: 20210826, end: 20210826

REACTIONS (3)
  - Subileus [Recovered/Resolved]
  - Crohn^s disease [Not Recovered/Not Resolved]
  - Familial mediterranean fever [Not Recovered/Not Resolved]

NARRATIVE: CASE EVENT DATE: 20210707
